FAERS Safety Report 7030998-7 (Version None)
Quarter: 2010Q4

REPORT INFORMATION
  Report Type: 
  Country: None (occurrence: None)
  Receive Date: 20101006
  Receipt Date: 20100623
  Transmission Date: 20110411
  Serious: Yes (Other)
  Sender: FDA-Public Use
  Company Number: US-BRISTOL-MYERS SQUIBB COMPANY-15117427

PATIENT
  Age: 74 Year
  Sex: Male
  Weight: 75 kg

DRUGS (16)
  1. KENALOG-40 [Suspect]
     Indication: BACK PAIN
     Dosage: T4 DF = 4 INJECTIONAS; THERAPY DATES:NOV09,JAN10,APR10
     Dates: start: 20091101
  2. PLAVIX [Suspect]
     Route: 048
  3. PREVACID [Suspect]
     Dosage: 1DF= 1(UNITS NOT SPECIFIED).
     Route: 048
  4. PRILOSEC [Suspect]
     Dosage: 1DF= 1(UNITS NOT SPECIFIED).
     Route: 048
  5. ASPIRIN [Concomitant]
     Dosage: PREVIOUSLY 325MG
     Route: 048
  6. FISH OIL [Concomitant]
     Route: 048
  7. FLOMAX [Concomitant]
     Route: 048
  8. CALCIUM [Concomitant]
     Route: 048
  9. HYZAAR [Concomitant]
     Dosage: DF=50/12.5MG P.O. DAILY (4-5 YEARS)
     Route: 048
  10. MULTI-VITAMIN [Concomitant]
     Dosage: DURATION=5-6YEARS
  11. VITAMIN B-12 [Concomitant]
     Dosage: DURATION=VITAMIN B12/B6/FOLIC ACID (5-6 YEARS)
  12. VITAMIN B6 [Concomitant]
     Dosage: DURATION=VITAMIN B12/B6/FOLIC ACID (5-6 YEARS)
  13. FOLIC ACID [Concomitant]
     Dosage: DURATION=VITAMIN B12/B6/FOLIC ACID (5-6 YEARS)
  14. DIGOXIN [Concomitant]
     Route: 048
  15. AMIODARONE [Concomitant]
     Route: 048
  16. LIPITOR [Concomitant]
     Route: 048

REACTIONS (4)
  - BACK PAIN [None]
  - CUSHINGOID [None]
  - GAIT DISTURBANCE [None]
  - MUSCULAR WEAKNESS [None]
